FAERS Safety Report 6074555-8 (Version None)
Quarter: 2009Q1

REPORT INFORMATION
  Report Type: 
  Country: None (occurrence: None)
  Receive Date: 20090206
  Receipt Date: 20090121
  Transmission Date: 20090719
  Serious: Yes (Other)
  Sender: FDA-Public Use
  Company Number: DSA_33113_2009

PATIENT
  Sex: Male

DRUGS (8)
  1. ATIVAN [Suspect]
     Indication: AGITATION
     Dosage: (3 MG QD)
  2. ATIVAN [Suspect]
     Indication: ANXIETY
     Dosage: (3 MG QD)
  3. ATIVAN [Suspect]
     Indication: SLEEP DISORDER
     Dosage: (3 MG QD)
  4. LISINOPRIL [Concomitant]
  5. VALIUM [Concomitant]
  6. EYE DROPS [Concomitant]
  7. A BUNCH OF HEART STUFF [Concomitant]
  8. CHOLESTEROL MEDICATIONS [Concomitant]

REACTIONS (7)
  - ANXIETY [None]
  - DRUG DEPENDENCE [None]
  - DRUG DOSE OMISSION [None]
  - DRUG WITHDRAWAL SYNDROME [None]
  - MUSCLE SPASMS [None]
  - REBOUND EFFECT [None]
  - TINNITUS [None]
